FAERS Safety Report 4924229-9 (Version None)
Quarter: 2006Q1

REPORT INFORMATION
  Report Type: 
  Country: None (occurrence: None)
  Receive Date: 20060227
  Receipt Date: 20051223
  Transmission Date: 20060701
  Serious: No
  Sender: FDA-Public Use
  Company Number: US-GLAXOSMITHKLINE-A0586934A

PATIENT
  Sex: Female

DRUGS (2)
  1. WELLBUTRIN XL [Suspect]
     Indication: DEPRESSION
     Dosage: 150MG PER DAY
     Route: 048
     Dates: start: 20051223, end: 20051223
  2. EFFEXOR [Concomitant]
     Dosage: 75MG TWICE PER DAY
     Dates: end: 20051222

REACTIONS (2)
  - FEELING ABNORMAL [None]
  - NAUSEA [None]
